FAERS Safety Report 6839491-5 (Version None)
Quarter: 2010Q3

REPORT INFORMATION
  Report Type: 
  Country: None (occurrence: None)
  Receive Date: 20100714
  Receipt Date: 20091021
  Transmission Date: 20110219
  Serious: Yes (Other)
  Sender: FDA-Public Use
  Company Number: A0806761A

PATIENT
  Age: 5 Year
  Sex: Male
  Weight: 40 kg

DRUGS (6)
  1. FLOVENT [Suspect]
     Dosage: 2PUFF TWICE PER DAY
     Route: 055
     Dates: start: 20090909, end: 20090910
  2. AMOXIL [Concomitant]
  3. XOPENEX [Concomitant]
  4. PREDNISONE [Concomitant]
  5. SINGULAIR [Concomitant]
  6. ZYRTEC [Concomitant]

REACTIONS (4)
  - ASTHMA [None]
  - COUGH [None]
  - DRUG INEFFECTIVE [None]
  - WHEEZING [None]
